FAERS Safety Report 16306647 (Version 1)
Quarter: 2019Q2

REPORT INFORMATION
  Report Type: Spontaneous
  Country: US (occurrence: US)
  Receive Date: 20190408
  Receipt Date: 20190408
  Transmission Date: 20190711
  Serious: Yes (Hospitalization)
  Sender: FDA-Public Use
  Company Number: None

PATIENT
  Age: 88 Year
  Sex: Female
  Weight: 73.03 kg

DRUGS (2)
  1. CAPECITABINE 500 MG [Suspect]
     Active Substance: CAPECITABINE
     Indication: COLON CANCER
     Route: 048
     Dates: start: 20171129
  2. CELEBREX [Concomitant]
     Active Substance: CELECOXIB

REACTIONS (2)
  - Dehydration [None]
  - Diarrhoea [None]
